FAERS Safety Report 20125974 (Version 2)
Quarter: 2021Q4

REPORT INFORMATION
  Report Type: Report from Study
  Country: US (occurrence: US)
  Receive Date: 20211129
  Receipt Date: 20211208
  Transmission Date: 20220304
  Serious: Yes (Other)
  Sender: FDA-Public Use
  Company Number: US-TAKEDA-2018TUS020610

PATIENT
  Sex: Female

DRUGS (3)
  1. VEDOLIZUMAB [Suspect]
     Active Substance: VEDOLIZUMAB
     Indication: Colitis ulcerative
     Dosage: 300 MILLIGRAM
     Route: 042
     Dates: start: 201805
  2. VEDOLIZUMAB [Suspect]
     Active Substance: VEDOLIZUMAB
     Dosage: 300 MILLIGRAM, Q4WEEKS
     Route: 042
  3. VEDOLIZUMAB [Suspect]
     Active Substance: VEDOLIZUMAB
     Dosage: 300 MILLIGRAM, Q6WEEKS
     Route: 042

REACTIONS (13)
  - Colitis ulcerative [Unknown]
  - Stress [Unknown]
  - Laboratory test abnormal [Unknown]
  - Bone disorder [Unknown]
  - Tooth disorder [Unknown]
  - Myalgia [Not Recovered/Not Resolved]
  - Laryngitis [Unknown]
  - Malabsorption [Unknown]
  - Illness [Unknown]
  - Fatigue [Unknown]
  - Cough [Unknown]
  - Headache [Unknown]
  - Off label use [Unknown]
